FAERS Safety Report 6062338-4 (Version None)
Quarter: 2009Q1

REPORT INFORMATION
  Report Type: 
  Country: None (occurrence: None)
  Receive Date: 20090203
  Receipt Date: 20090128
  Transmission Date: 20090719
  Serious: Yes (Life-Threatening)
  Sender: FDA-Public Use
  Company Number: PHHY2009FR03573

PATIENT
  Sex: Female

DRUGS (13)
  1. NEORAL [Suspect]
     Indication: GRAFT VERSUS HOST DISEASE
     Dosage: 240 MG DAILY
     Route: 048
     Dates: start: 20080929, end: 20081024
  2. CLAMOXYL [Suspect]
     Dosage: 2 G DAILY
     Route: 048
     Dates: start: 20081021, end: 20081026
  3. NOXAFIL [Suspect]
     Dosage: 800 MG DAILY
     Route: 048
     Dates: start: 20081021, end: 20081026
  4. FOSCAVIR [Suspect]
     Dosage: 180 MG DAILY
     Route: 048
     Dates: start: 20081022, end: 20081024
  5. FANSIDAR [Suspect]
     Dosage: 3 TABLETS
     Dates: start: 20081023
  6. FANSIDAR [Suspect]
     Dosage: 4 TABLETS
     Dates: start: 20081024, end: 20081024
  7. FANSIDAR [Suspect]
     Dosage: 1 TABLET DAILY
     Dates: start: 20081028
  8. SOLU-MEDROL [Concomitant]
     Indication: GRAFT VERSUS HOST DISEASE
     Dosage: UNK
     Dates: start: 20080929
  9. CORTANCYL [Concomitant]
  10. LEDERFOLIN [Concomitant]
  11. ZOLPIDEM [Concomitant]
  12. CALCIDOSE [Concomitant]
  13. ALPRAZOLAM [Concomitant]

REACTIONS (8)
  - BLINDNESS [None]
  - CEREBROVASCULAR ACCIDENT [None]
  - CONVULSION [None]
  - DRUG LEVEL INCREASED [None]
  - EPILEPSY [None]
  - GRAND MAL CONVULSION [None]
  - HEADACHE [None]
  - REVERSIBLE POSTERIOR LEUKOENCEPHALOPATHY SYNDROME [None]
